FAERS Safety Report 8395068-4 (Version None)
Quarter: 2012Q1

REPORT INFORMATION
  Report Type: 
  Country: None (occurrence: None)
  Receive Date: 20120323
  Receipt Date: 20110426
  Transmission Date: 20120608
  Serious: Yes (Hospitalization)
  Sender: FDA-Public Use
  Company Number: 163-21880-11040134

PATIENT
  Age: 55 Year
  Sex: Male

DRUGS (7)
  1. REVLIMID [Suspect]
     Indication: MULTIPLE MYELOMA
     Dosage: 20 MG, DAILY FOR 14 DAYS, PO
     Route: 048
     Dates: start: 20100616
  2. ASPIRIN [Concomitant]
  3. BACTRIM [Concomitant]
  4. OXYCONTIN [Concomitant]
  5. CELEXA [Concomitant]
  6. ACYCLOVIR [Concomitant]
  7. B COMPLEX ELX [Concomitant]

REACTIONS (5)
  - INFLUENZA [None]
  - BRONCHITIS [None]
  - FUNGAL INFECTION [None]
  - PNEUMONIA [None]
  - RASH PRURITIC [None]
